FAERS Safety Report 26058932 (Version 1)
Quarter: 2025Q4

REPORT INFORMATION
  Report Type: Spontaneous
  Country: US (occurrence: US)
  Receive Date: 20251118
  Receipt Date: 20251118
  Transmission Date: 20260118
  Serious: No
  Sender: COLLEGIUM PHARMACEUTICAL
  Company Number: US-COLLEGIUM PHARMACEUTICAL, INC.-20250702353

PATIENT

DRUGS (1)
  1. BELBUCA [Suspect]
     Active Substance: BUPRENORPHINE HYDROCHLORIDE
     Indication: Product used for unknown indication
     Dosage: UNK, UNKNOWN
     Route: 002
     Dates: start: 2023

REACTIONS (5)
  - Product physical consistency issue [None]
  - Product quality issue [None]
  - Product physical issue [None]
  - Product packaging issue [None]
  - Suspected product tampering [None]

NARRATIVE: CASE EVENT DATE: 20250701
